FAERS Safety Report 22302409 (Version 2)
Quarter: 2023Q2

REPORT INFORMATION
  Report Type: Spontaneous
  Country: IR (occurrence: IR)
  Receive Date: 20230510
  Receipt Date: 20230518
  Transmission Date: 20230721
  Serious: Yes (Life-Threatening, Hospitalization, Other)
  Sender: FDA-Public Use
  Company Number: IR-MACLEODS PHARMACEUTICALS US LTD-MAC2023041192

PATIENT

DRUGS (5)
  1. LIDOCAINE [Suspect]
     Active Substance: LIDOCAINE
     Indication: Pruritus genital
     Dosage: 2 DOSAGE FORM, QD (TWO TUBES OF LIDOCAINE OINTMENT 5% (70 G/10G))
     Route: 061
  2. LIDOCAINE [Suspect]
     Active Substance: LIDOCAINE
     Indication: Genital pain
  3. BENZOCAINE [Suspect]
     Active Substance: BENZOCAINE
     Indication: Genital pain
     Dosage: 2 DOSAGE FORM, QD TWO TUBES OF BENZOCAINE OINTMENT 5% (60 G/10 G)
     Route: 061
  4. BENZOCAINE [Suspect]
     Active Substance: BENZOCAINE
     Indication: Pruritus genital
  5. Podophyllin resin [Concomitant]
     Indication: Anogenital warts
     Dosage: UNK
     Route: 061

REACTIONS (3)
  - Methaemoglobinaemia [Recovered/Resolved]
  - Haemolysis [Recovered/Resolved]
  - Self-medication [Recovered/Resolved]
